FAERS Safety Report 6360599-5 (Version None)
Quarter: 2009Q3

REPORT INFORMATION
  Report Type: 
  Country: None (occurrence: None)
  Receive Date: 20090915
  Receipt Date: 20090902
  Transmission Date: 20100115
  Serious: Yes (Other)
  Sender: FDA-Public Use
  Company Number: 230886K09USA

PATIENT
  Age: 47 Year
  Sex: Female

DRUGS (7)
  1. REBIF [Suspect]
     Indication: MULTIPLE SCLEROSIS
     Dosage: 44 MCG, 3 IN 1 WEEKS, SUBCUTANEOUS
     Route: 058
     Dates: start: 20020123
  2. SYNTHROID [Concomitant]
  3. ADVIL [Concomitant]
  4. ACTONEL [Concomitant]
  5. WELLBUTRIN [Concomitant]
  6. YAZ [Concomitant]
  7. DETROL [Concomitant]

REACTIONS (4)
  - DEPRESSION [None]
  - HYPOTHYROIDISM [None]
  - OSTEOPENIA [None]
  - SYSTEMIC LUPUS ERYTHEMATOSUS [None]
